FAERS Safety Report 13382215 (Version 6)
Quarter: 2017Q3

REPORT INFORMATION
  Report Type: Spontaneous
  Country: US (occurrence: US)
  Receive Date: 20170329
  Receipt Date: 20170724
  Transmission Date: 20171127
  Serious: Yes (Congenital Anomaly, Other)
  Sender: FDA-Public Use
  Company Number: PHEH2017US008690

PATIENT
  Sex: Male

DRUGS (3)
  1. ZOFRAN ODT [Suspect]
     Active Substance: ONDANSETRON HYDROCHLORIDE
     Indication: FOETAL EXPOSURE DURING PREGNANCY
     Route: 064
  2. ZOFRAN [Suspect]
     Active Substance: ONDANSETRON HYDROCHLORIDE
     Indication: FOETAL EXPOSURE DURING PREGNANCY
     Dosage: MOTHER DOSE: 04 MG, Q8H
     Route: 064
  3. ZOFRAN [Suspect]
     Active Substance: ONDANSETRON HYDROCHLORIDE
     Indication: FOETAL EXPOSURE DURING PREGNANCY
     Dosage: UNK
     Route: 064

REACTIONS (53)
  - Mitral valve disease [Unknown]
  - Right ventricular dysfunction [Unknown]
  - Neonatal respiratory distress syndrome [Unknown]
  - Hypoxia [Unknown]
  - Sinus tachycardia [Unknown]
  - Developmental delay [Unknown]
  - Testicular pain [Unknown]
  - Chest pain [Not Recovered/Not Resolved]
  - Endocardial fibroelastosis [Unknown]
  - Rhinorrhoea [Unknown]
  - Hypoplastic left heart syndrome [Unknown]
  - Shone complex [Unknown]
  - Tricuspid valve incompetence [Unknown]
  - Right aortic arch [Unknown]
  - Tonsillar hypertrophy [Unknown]
  - Cyanosis neonatal [Unknown]
  - Pericardial effusion [Unknown]
  - Mitral valve incompetence [Unknown]
  - Arrhythmia [Unknown]
  - Injury [Unknown]
  - Speech disorder [Unknown]
  - Arthralgia [Unknown]
  - Rhinitis allergic [Unknown]
  - Pyrexia [Unknown]
  - Atrial septal defect [Unknown]
  - Haematochezia [Unknown]
  - Joint injury [Unknown]
  - Cough [Unknown]
  - Decreased appetite [Unknown]
  - Orchitis [Unknown]
  - Patent ductus arteriosus [Unknown]
  - Cardiac murmur [Unknown]
  - Fatigue [Unknown]
  - Neonatal hypotension [Unknown]
  - Aortic stenosis [Unknown]
  - Hypoglycaemia neonatal [Unknown]
  - Failure to thrive [Unknown]
  - Deafness [Unknown]
  - Bradycardia neonatal [Unknown]
  - Otitis media [Unknown]
  - Gastrooesophageal reflux disease [Unknown]
  - Vertigo [Unknown]
  - Dizziness [Unknown]
  - Headache [Unknown]
  - Left-to-right cardiac shunt [Unknown]
  - Right ventricular hypertrophy [Unknown]
  - Right ventricular dilatation [Unknown]
  - Foetal exposure during pregnancy [Unknown]
  - Viral pharyngitis [Unknown]
  - Weight gain poor [Unknown]
  - Nasal congestion [Unknown]
  - Oropharyngeal pain [Unknown]
  - Anxiety [Unknown]

NARRATIVE: CASE EVENT DATE: 20020819
